FAERS Safety Report 5652329-7 (Version None)
Quarter: 2008Q1

REPORT INFORMATION
  Report Type: 
  Country: None (occurrence: None)
  Receive Date: 20080131
  Receipt Date: 20071015
  Transmission Date: 20080703
  Serious: No
  Sender: FDA-Public Use
  Company Number: US200710003987

PATIENT
  Age: 60 Year
  Sex: Female
  Weight: 112.5 kg

DRUGS (4)
  1. BYETTA [Suspect]
     Indication: TYPE 2 DIABETES MELLITUS
     Dosage: 5 UG, 2/D, SUBCUTANEOUS
     Route: 058
     Dates: start: 20070901
  2. METFORMIN HCL [Concomitant]
  3. GLYBURIDE [Concomitant]
  4. AVANDIA [Concomitant]

REACTIONS (3)
  - ABDOMINAL DISTENSION [None]
  - BLOOD GLUCOSE INCREASED [None]
  - WEIGHT DECREASED [None]
